FAERS Safety Report 9259616 (Version 2)
Quarter: 2013Q2

REPORT INFORMATION
  Report Type: Report from Study
  Country: DE (occurrence: DE)
  Receive Date: 20130429
  Receipt Date: 20130501
  Transmission Date: 20140414
  Serious: Yes (Death, Hospitalization)
  Sender: FDA-Public Use
  Company Number: DE-ROCHE-1211719

PATIENT
  Sex: Male

DRUGS (17)
  1. RITUXIMAB [Suspect]
     Indication: B-CELL LYMPHOMA
     Route: 042
     Dates: start: 20130320
  2. CYCLOPHOSPHAMIDE [Suspect]
     Indication: B-CELL LYMPHOMA
     Route: 042
     Dates: start: 20130321
  3. DOXORUBICINE [Suspect]
     Indication: B-CELL LYMPHOMA
     Route: 042
     Dates: start: 20130321
  4. VINCRISTINE [Suspect]
     Indication: B-CELL LYMPHOMA
     Dosage: LIPOSOMAL
     Route: 042
     Dates: start: 20130321
  5. PEGFILGRASTIM [Suspect]
     Indication: B-CELL LYMPHOMA
     Route: 058
     Dates: start: 20130326
  6. PREDNISONE [Suspect]
     Indication: B-CELL LYMPHOMA
     Route: 048
     Dates: start: 20130321
  7. POTASSIUM SODIUM HYDROGEN CITRATE [Concomitant]
     Indication: BLOOD URIC ACID
     Dosage: 3 SPPONS
     Route: 048
     Dates: start: 20130321
  8. ACICLOVIR [Concomitant]
     Indication: PROPHYLAXIS
     Dosage: DAILY
     Route: 048
     Dates: start: 20130320
  9. GRANISETRON [Concomitant]
     Indication: ANTIEMETIC SUPPORTIVE CARE
     Route: 042
     Dates: start: 20130321
  10. MESNA [Concomitant]
     Indication: PROPHYLAXIS
     Route: 048
  11. LEVOFLOXACIN [Concomitant]
     Indication: PROPHYLAXIS
     Dosage: 7D/CYCLE
     Route: 048
  12. TORASEMIDE [Concomitant]
     Indication: RENAL FAILURE
     Dosage: 20/12.5 MG
     Route: 048
  13. SOLIFENACIN [Concomitant]
     Indication: INCONTINENCE
     Route: 048
  14. ISOPHAN-INSULIN [Concomitant]
     Indication: DIABETES MELLITUS
     Route: 058
  15. RIVAROXABAN [Concomitant]
     Indication: PROPHYLAXIS
     Route: 048
  16. HYDROCHLOROTHIAZIDE/LISINOPRIL [Concomitant]
     Indication: HYPERTENSION
     Dosage: 20/12 5MG EACH DAY
     Route: 048
  17. PANTOPRAZOL NATRIUM [Concomitant]
     Indication: PROPHYLAXIS
     Route: 065
     Dates: start: 20130322

REACTIONS (7)
  - Leukopenia [Fatal]
  - Febrile neutropenia [Fatal]
  - Pneumonia aspiration [Fatal]
  - General physical health deterioration [Recovered/Resolved]
  - Hyperglycaemia [Unknown]
  - Leukopenia [Recovered/Resolved]
  - Thrombocytopenia [Not Recovered/Not Resolved]
